FAERS Safety Report 10360104 (Version 1)
Quarter: 2014Q3

REPORT INFORMATION
  Report Type: Spontaneous
  Country: US (occurrence: None)
  Receive Date: 20140801
  Receipt Date: 20140801
  Transmission Date: 20150326
  Serious: Yes (Other)
  Sender: FDA-Public Use
  Company Number: None

PATIENT
  Age: 38 Year
  Sex: Female
  Weight: 96.16 kg

DRUGS (7)
  1. LEVEMIR [Concomitant]
     Active Substance: INSULIN DETEMIR
  2. LOSARTAN-HCTZ [Concomitant]
     Active Substance: HYDROCHLOROTHIAZIDE\LOSARTAN
  3. METFORMIN [Concomitant]
     Active Substance: METFORMIN HYDROCHLORIDE
  4. VITAMIN D3 [Concomitant]
     Active Substance: CHOLECALCIFEROL
  5. VITAMIN B12 [Concomitant]
     Active Substance: CYANOCOBALAMIN
  6. LIRAGLUTIDE 1.8MG [Suspect]
     Active Substance: LIRAGLUTIDE
     Indication: DIABETES MELLITUS INADEQUATE CONTROL
     Route: 058
     Dates: start: 20140620, end: 20140721
  7. ORTHO TRI CYCLEN LO [Concomitant]
     Active Substance: ETHINYL ESTRADIOL\NORGESTIMATE

REACTIONS (9)
  - Cholelithiasis [None]
  - Liver function test abnormal [None]
  - Alanine aminotransferase increased [None]
  - Blood bilirubin increased [None]
  - Hepatitis B e antibody positive [None]
  - Abdominal pain upper [None]
  - Chromaturia [None]
  - Aspartate aminotransferase increased [None]
  - Blood alkaline phosphatase increased [None]

NARRATIVE: CASE EVENT DATE: 20140718
